FAERS Safety Report 7247126-5 (Version None)
Quarter: 2011Q1

REPORT INFORMATION
  Report Type: 
  Country: None (occurrence: None)
  Receive Date: 20110127
  Receipt Date: 20100812
  Transmission Date: 20110831
  Serious: No
  Sender: FDA-Public Use
  Company Number: US-BAUSCH-2010BL004469

PATIENT
  Age: 63 Year
  Sex: Female
  Weight: 69 kg

DRUGS (2)
  1. ALAWAY [Suspect]
     Indication: EYE PRURITUS
     Route: 047
     Dates: start: 20100810, end: 20100810
  2. ALAWAY [Suspect]
     Indication: OCULAR HYPERAEMIA
     Route: 047
     Dates: start: 20100810, end: 20100810

REACTIONS (2)
  - NAUSEA [None]
  - HEADACHE [None]
